FAERS Safety Report 7827483-9 (Version None)
Quarter: 2011Q4

REPORT INFORMATION
  Report Type: 
  Country: None (occurrence: None)
  Receive Date: 20111019
  Receipt Date: 20111019
  Transmission Date: 20120403
  Serious: No
  Sender: FDA-Public Use
  Company Number: None

PATIENT
  Age: 88 Year
  Sex: Male
  Weight: 57.1 kg

DRUGS (1)
  1. HYDRALAZINE HCL [Suspect]
     Indication: HYPERTENSION
     Dosage: 25 MG TID PO
     Route: 048
     Dates: start: 20110428, end: 20110613

REACTIONS (3)
  - HYPOTENSION [None]
  - DIZZINESS [None]
  - SYNCOPE [None]
